FAERS Safety Report 9295359 (Version 1)
Quarter: 2013Q1

REPORT INFORMATION
  Report Type: Spontaneous
  Country: US (occurrence: None)
  Receive Date: 20121227
  Receipt Date: 20121227
  Transmission Date: 20140127
  Serious: No
  Sender: FDA-Public Use
  Company Number: PHEH2012US022326

PATIENT
  Age: 15 Year
  Sex: Female

DRUGS (4)
  1. AFINITOR [Suspect]
     Indication: TUBEROUS SCLEROSIS
     Route: 048
     Dates: start: 201210, end: 20121107
  2. AFINITOR [Suspect]
     Indication: GLIOMA
     Route: 048
     Dates: start: 201210, end: 20121107
  3. KEPRA (LEVETIRACETAM) [Concomitant]
  4. FOCALIN (DEXMETHYLPHENIDATE HYDROCHLORIDE) [Concomitant]

REACTIONS (5)
  - Blood pressure increased [None]
  - Headache [None]
  - Decreased appetite [None]
  - Weight decreased [None]
  - Abnormal behaviour [None]
